FAERS Safety Report 6524661-6 (Version None)
Quarter: 2010Q1

REPORT INFORMATION
  Report Type: 
  Country: None (occurrence: None)
  Receive Date: 20100104
  Receipt Date: 20091221
  Transmission Date: 20100710
  Serious: Yes (Disabling)
  Sender: FDA-Public Use
  Company Number: DK-AMGEN-US286586

PATIENT
  Sex: Male

DRUGS (4)
  1. ENBREL [Suspect]
     Indication: RHEUMATOID ARTHRITIS
     Route: 058
     Dates: start: 20071220
  2. ENBREL [Suspect]
  3. SULFASALAZINE [Suspect]
     Dosage: UNKNOWN
     Dates: start: 20010101, end: 20080101
  4. METHOTREXATE [Suspect]
     Indication: RHEUMATOID ARTHRITIS
     Dosage: UNKNOWN
     Dates: start: 20041001, end: 20080401

REACTIONS (4)
  - ACUTE INTERSTITIAL PNEUMONITIS [None]
  - ACUTE PHASE REACTION [None]
  - PULMONARY FIBROSIS [None]
  - PYREXIA [None]
